FAERS Safety Report 8370920-4 (Version None)
Quarter: 2012Q2

REPORT INFORMATION
  Report Type: 
  Country: None (occurrence: None)
  Receive Date: 20120518
  Receipt Date: 20120315
  Transmission Date: 20120825
  Serious: No
  Sender: FDA-Public Use
  Company Number: US-BAUSCH-2012BL001873

PATIENT
  Age: 59 Year
  Sex: Male

DRUGS (2)
  1. IPRATROPIUM BROMIDE [Suspect]
     Route: 045
     Dates: start: 20110101
  2. IPRATROPIUM BROMIDE [Suspect]
     Indication: PARANASAL SINUS HYPERSECRETION
     Route: 045
     Dates: start: 20050101

REACTIONS (1)
  - DRUG EFFECT DECREASED [None]
